FAERS Safety Report 8315813-3 (Version None)
Quarter: 2012Q2

REPORT INFORMATION
  Report Type: 
  Country: None (occurrence: None)
  Receive Date: 20120427
  Receipt Date: 20120414
  Transmission Date: 20120825
  Serious: Yes (Hospitalization, Other)
  Sender: FDA-Public Use
  Company Number: US-PAR PHARMACEUTICAL, INC-2012SCPR004335

PATIENT

DRUGS (5)
  1. ZOLPIDEM TARTRATE [Suspect]
     Indication: MIDDLE INSOMNIA
     Dosage: UNK UNK, UNKNOWN
     Route: 065
  2. HALOPERIDOL DECANOATE [Concomitant]
     Indication: SCHIZOAFFECTIVE DISORDER
     Dosage: 100 MG, EVERY MONTH
     Route: 030
  3. ZOLPIDEM TARTRATE [Suspect]
     Indication: PAIN
  4. DULOXETINE HYDROCHLORIDE [Concomitant]
     Indication: PAIN
     Dosage: 60 MG, / DAY
     Route: 065
  5. NAPROXEN [Concomitant]
     Indication: PAIN
     Dosage: AS NEEDED
     Route: 065

REACTIONS (7)
  - TOXICITY TO VARIOUS AGENTS [None]
  - DRUG ABUSE [None]
  - DELUSION [None]
  - HALLUCINATION [None]
  - PYROMANIA [None]
  - ABNORMAL BEHAVIOUR [None]
  - LOSS OF CONSCIOUSNESS [None]
